FAERS Safety Report 12223247 (Version 3)
Quarter: 2016Q2

REPORT INFORMATION
  Report Type: Spontaneous
  Country: GB (occurrence: GB)
  Receive Date: 20160330
  Receipt Date: 20160610
  Transmission Date: 20160815
  Serious: Yes (Death, Life-Threatening, Hospitalization, Other)
  Sender: FDA-Public Use
  Company Number: GB-ELI_LILLY_AND_COMPANY-GB201603008483

PATIENT
  Age: 56 Year
  Sex: Male
  Weight: 72 kg

DRUGS (13)
  1. VITAMIN B12 [Concomitant]
     Active Substance: CYANOCOBALAMIN
     Dosage: 1 MG, UNK
     Dates: start: 20150203
  2. ALIMTA [Suspect]
     Active Substance: PEMETREXED DISODIUM
     Indication: LUNG ADENOCARCINOMA STAGE IV
     Dosage: 750 MG, EVERY 3 WEEKS
     Route: 042
     Dates: start: 20150209
  3. ALIMTA [Suspect]
     Active Substance: PEMETREXED DISODIUM
     Dosage: 750 MG, EVERY 3 WEEKS
     Route: 042
     Dates: start: 20150302
  4. CARBOPLATINA [Suspect]
     Active Substance: CARBOPLATIN
     Dosage: 500 MG, EVERY 3 WEEKS
     Route: 042
     Dates: start: 20150319
  5. CRIZOTINIB [Suspect]
     Active Substance: CRIZOTINIB
     Indication: EPILEPSY
  6. FOLIC ACID. [Concomitant]
     Active Substance: FOLIC ACID
     Dosage: 400 MG, QD
     Route: 048
     Dates: start: 20150203
  7. DEXAMETHASONE. [Concomitant]
     Active Substance: DEXAMETHASONE
     Indication: ADJUVANT THERAPY
     Dosage: 4 MG, UNK
     Route: 048
     Dates: start: 20150209
  8. CRIZOTINIB [Suspect]
     Active Substance: CRIZOTINIB
     Indication: CEREBRAL DISORDER
     Dosage: 250 MG, UNKNOWN
     Route: 048
     Dates: start: 20150318, end: 20150330
  9. CARBOPLATINA [Suspect]
     Active Substance: CARBOPLATIN
     Dosage: 500 MG, EVERY 3 WEEKS
     Route: 042
     Dates: start: 20150209
  10. ALIMTA [Suspect]
     Active Substance: PEMETREXED DISODIUM
     Dosage: 750 MG, EVERY 3 WEEKS
     Route: 042
     Dates: start: 20150319, end: 20150319
  11. CARBOPLATINA [Suspect]
     Active Substance: CARBOPLATIN
     Dosage: 500 MG, EVERY 3 WEEKS
     Route: 042
     Dates: start: 20150302
  12. ONDANSETRON [Concomitant]
     Active Substance: ONDANSETRON
     Indication: ADJUVANT THERAPY
     Dosage: 8 MG, QD
     Route: 048
     Dates: start: 20150209
  13. AUGMENTINE                         /00756801/ [Concomitant]
     Indication: ANTIBIOTIC THERAPY
     Dosage: 625 MG, TID
     Route: 048
     Dates: start: 20150211

REACTIONS (8)
  - Malignant neoplasm progression [Unknown]
  - Bronchopulmonary aspergillosis [Fatal]
  - Respiratory failure [Fatal]
  - Cerebral aspergillosis [Fatal]
  - Off label use [Unknown]
  - Sepsis [None]
  - Bone marrow failure [Unknown]
  - Lymphangiosis carcinomatosa [Unknown]

NARRATIVE: CASE EVENT DATE: 20150227
